FAERS Safety Report 14334895 (Version 1)
Quarter: 2017Q4

REPORT INFORMATION
  Report Type: Spontaneous
  Country: CA (occurrence: CA)
  Receive Date: 20171229
  Receipt Date: 20171229
  Transmission Date: 20180321
  Serious: Yes (Other)
  Sender: FDA-Public Use
  Company Number: CA-MACLEODS PHARMACEUTICALS US LTD-MAC2017007441

PATIENT

DRUGS (1)
  1. LEVOFLOXACIN. [Suspect]
     Active Substance: LEVOFLOXACIN
     Indication: URINARY TRACT INFECTION
     Dosage: 500 MG, SINGLE DOSE
     Route: 048

REACTIONS (8)
  - Agitation [Recovered/Resolved]
  - Insomnia [Recovered/Resolved]
  - Derealisation [Recovered/Resolved]
  - Acute psychosis [Recovered/Resolved]
  - Neurotoxicity [Recovered/Resolved]
  - Depersonalisation/derealisation disorder [Recovered/Resolved]
  - Nightmare [Recovered/Resolved]
  - Hallucination, auditory [Recovered/Resolved]
